FAERS Safety Report 4583510-6 (Version None)
Quarter: 2005Q1

REPORT INFORMATION
  Report Type: 
  Country: None (occurrence: None)
  Receive Date: 20050211
  Receipt Date: 20050201
  Transmission Date: 20050727
  Serious: Yes (Other)
  Sender: FDA-Public Use
  Company Number: 2005024211

PATIENT
  Sex: Female
  Weight: 52.1637 kg

DRUGS (10)
  1. DETROL LA [Suspect]
     Indication: HYPERTONIC BLADDER
     Dosage: 4 MG (4 MG, 1 IN 1 D), ORAL
     Route: 048
  2. K-DUR 10 [Concomitant]
  3. MONOPRIL [Concomitant]
  4. TOPROL (METOPROLOL) [Concomitant]
  5. FUROSEMIDE [Concomitant]
  6. ALPRAZOLAM [Concomitant]
  7. ULTRACET [Concomitant]
  8. NEURONTIN [Concomitant]
  9. ZOLOFT [Concomitant]
  10. METHADONE HCL [Concomitant]

REACTIONS (3)
  - ANGIOPLASTY [None]
  - BLOOD CHOLESTEROL INCREASED [None]
  - GASTROOESOPHAGEAL REFLUX DISEASE [None]
